FAERS Safety Report 15498154 (Version 1)
Quarter: 2018Q4

REPORT INFORMATION
  Report Type: Spontaneous
  Country: BE (occurrence: BE)
  Receive Date: 20181015
  Receipt Date: 20181015
  Transmission Date: 20190205
  Serious: Yes (Other)
  Sender: FDA-Public Use
  Company Number: BE-IPCA LABORATORIES LIMITED-IPC-2018-BE-002131

PATIENT

DRUGS (8)
  1. VINCRISTINE [Concomitant]
     Active Substance: VINCRISTINE
     Indication: ACUTE LYMPHOCYTIC LEUKAEMIA
     Dosage: 1.5 MG/M2, UNK
     Route: 065
  2. CERUBIDINE [Concomitant]
     Active Substance: DAUNORUBICIN HYDROCHLORIDE
     Indication: ACUTE LYMPHOCYTIC LEUKAEMIA
     Dosage: 30 MG/M2, UNK
     Route: 065
  3. CYCLOPHOSPHAMIDE. [Concomitant]
     Active Substance: CYCLOPHOSPHAMIDE
     Indication: ACUTE LYMPHOCYTIC LEUKAEMIA
     Dosage: 1000 MG/M2, UNK
     Route: 065
  4. METHOTREXATE. [Concomitant]
     Active Substance: METHOTREXATE
     Indication: PRODUCT USED FOR UNKNOWN INDICATION
     Dosage: 5 G/M2
     Route: 065
  5. FOLINATE [Concomitant]
     Indication: PRODUCT USED FOR UNKNOWN INDICATION
     Dosage: 15 MG/M2, UNK
     Route: 065
  6. UROMITEXAN [Concomitant]
     Active Substance: MESNA
     Indication: ACUTE LYMPHOCYTIC LEUKAEMIA
     Dosage: 350 MG/M2, UNK
     Route: 065
  7. DIPIPERON [Interacting]
     Active Substance: PIPAMPERONE
     Indication: REACTIVE ATTACHMENT DISORDER OF INFANCY OR EARLY CHILDHOOD
     Dosage: 30 MG, QD
     Route: 065
  8. ONDANSETRON [Suspect]
     Active Substance: ONDANSETRON
     Indication: PROPHYLAXIS OF NAUSEA AND VOMITING
     Dosage: 5 MG/M2, BID
     Route: 042

REACTIONS (2)
  - Drug interaction [Unknown]
  - Electrocardiogram QT prolonged [Unknown]
